FAERS Safety Report 6833622-9 (Version None)
Quarter: 2010Q3

REPORT INFORMATION
  Report Type: 
  Country: None (occurrence: None)
  Receive Date: 20100712
  Receipt Date: 20070328
  Transmission Date: 20110219
  Serious: No
  Sender: FDA-Public Use
  Company Number: US-PFIZER INC-2007026654

PATIENT
  Sex: Male
  Weight: 108.86 kg

DRUGS (5)
  1. CHANTIX [Suspect]
     Indication: SMOKING CESSATION THERAPY
     Dates: start: 20070321, end: 20070327
  2. MONTELUKAST SODIUM [Concomitant]
  3. TAMSULOSIN HYDROCHLORIDE [Concomitant]
  4. COZAAR [Concomitant]
  5. MULTI-VITAMINS [Concomitant]

REACTIONS (4)
  - HEADACHE [None]
  - HYPOAESTHESIA [None]
  - KIDNEY INFECTION [None]
  - TOOTHACHE [None]
